FAERS Safety Report 4483951-1 (Version None)
Quarter: 2004Q4

REPORT INFORMATION
  Report Type: 
  Country: None (occurrence: None)
  Receive Date: 20041021
  Receipt Date: 20041012
  Transmission Date: 20050328
  Serious: Yes (Life-Threatening, Hospitalization)
  Sender: FDA-Public Use
  Company Number: STA-AE-04-MTX-485

PATIENT
  Age: 52 Year
  Sex: Male

DRUGS (3)
  1. METHOTREXATE [Suspect]
     Dosage: 15 MG 1X PER 1 WK, ORAL
     Route: 048
     Dates: start: 19971101, end: 20040622
  2. ENBREL [Suspect]
     Indication: PSORIATIC ARTHROPATHY
     Dosage: 25 MG 2X PR 1 WK, SC
     Route: 058
     Dates: start: 20021210, end: 20040615
  3. IBUPROFEN [Concomitant]

REACTIONS (4)
  - ARTHRALGIA [None]
  - PELVIC ABSCESS [None]
  - PROSTATE CANCER [None]
  - STREPTOCOCCAL INFECTION [None]
